FAERS Safety Report 4550236-4 (Version None)
Quarter: 2004Q4

REPORT INFORMATION
  Report Type: 
  Country: None (occurrence: None)
  Receive Date: 20041227
  Receipt Date: 20041112
  Transmission Date: 20050328
  Serious: No
  Sender: FDA-Public Use
  Company Number: 04P-163-028-0645-00

PATIENT
  Age: 47 Year
  Sex: Female

DRUGS (12)
  1. HUMIRA [Suspect]
     Indication: RHEUMATOID ARTHRITIS
     Dosage: 40 MG, 1 IN 1 WK, SUBCUTANEOUS
     Route: 058
     Dates: start: 20040801
  2. FUROSEMIDE [Concomitant]
  3. CARVEDILOL [Concomitant]
  4. DIGOXIN [Concomitant]
  5. IRBESARTAN [Concomitant]
  6. ATORVASTATIN [Concomitant]
  7. MONTELUKAST SODIUM [Concomitant]
  8. GLIBENCLAMIDE [Concomitant]
  9. METHOTREXATE [Concomitant]
  10. FOLIC ACID [Concomitant]
  11. DOXYCYCLINE [Concomitant]
  12. SULFACITINE [Concomitant]

REACTIONS (1)
  - INJECTION SITE PAIN [None]
